FAERS Safety Report 8277123-2 (Version None)
Quarter: 2012Q2

REPORT INFORMATION
  Report Type: 
  Country: None (occurrence: None)
  Receive Date: 20120412
  Receipt Date: 20120403
  Transmission Date: 20120825
  Serious: Yes (Hospitalization)
  Sender: FDA-Public Use
  Company Number: US-ASTRAZENECA-2012SE21920

PATIENT
  Sex: Female

DRUGS (3)
  1. BYSTOLIC [Suspect]
     Route: 065
  2. TENORMIN [Suspect]
     Route: 048
  3. CARDIZEM [Suspect]
     Route: 065

REACTIONS (2)
  - OEDEMA PERIPHERAL [None]
  - HEART RATE DECREASED [None]
